FAERS Safety Report 10647312 (Version 1)
Quarter: 2014Q4

REPORT INFORMATION
  Report Type: Spontaneous
  Country: US (occurrence: US)
  Receive Date: 20141211
  Receipt Date: 20141211
  Transmission Date: 20150529
  Serious: Yes (Hospitalization, Other)
  Sender: FDA-Public Use
  Company Number: US-PFIZER INC-2014335060

PATIENT
  Sex: Male

DRUGS (1)
  1. ADVIL [Suspect]
     Active Substance: IBUPROFEN
     Dosage: 3 CAPSULES, 600 MG, UNK

REACTIONS (5)
  - Pallor [Unknown]
  - Extra dose administered [Unknown]
  - Internal haemorrhage [Unknown]
  - Vascular rupture [Unknown]
  - Anaemia [Recovered/Resolved]
